FAERS Safety Report 6448727-4 (Version None)
Quarter: 2009Q4

REPORT INFORMATION
  Report Type: 
  Country: None (occurrence: None)
  Receive Date: 20091120
  Receipt Date: 20091030
  Transmission Date: 20100525
  Serious: No
  Sender: FDA-Public Use
  Company Number: US-KINGPHARMUSA00001-K200901383

PATIENT
  Age: 42 Year
  Sex: Male
  Weight: 77.098 kg

DRUGS (1)
  1. FLECTOR [Suspect]
     Indication: MUSCLE STRAIN
     Dosage: 1 PATCH, BID
     Route: 061
     Dates: start: 20091021, end: 20091029

REACTIONS (4)
  - DIZZINESS [None]
  - NAUSEA [None]
  - TINNITUS [None]
  - VERTIGO [None]
